FAERS Safety Report 6627047-9 (Version None)
Quarter: 2010Q1

REPORT INFORMATION
  Report Type: 
  Country: None (occurrence: None)
  Receive Date: 20100311
  Receipt Date: 20100301
  Transmission Date: 20100710
  Serious: Yes (Hospitalization)
  Sender: FDA-Public Use
  Company Number: FR-TEVA-226176ISR

PATIENT
  Age: 73 Year
  Sex: Female

DRUGS (11)
  1. AMIODARONE HCL [Interacting]
  2. BROMAZEPAM [Interacting]
  3. ZOLPIDEM [Suspect]
  4. ESOMEPRAZOLE [Interacting]
  5. FLUINDIONE [Concomitant]
  6. DIPYRAMIDOLE [Concomitant]
  7. RAMIPRIL [Concomitant]
  8. AMLODIPINE [Concomitant]
  9. ATORVASTATIN CALCIUM [Concomitant]
  10. GLICLAZIDE [Concomitant]
  11. BETAHISTINE [Concomitant]

REACTIONS (3)
  - COMA [None]
  - DRUG INTERACTION [None]
  - OVERDOSE [None]
